FAERS Safety Report 4776845-5 (Version None)
Quarter: 2005Q3

REPORT INFORMATION
  Report Type: 
  Country: None (occurrence: None)
  Receive Date: 20050921
  Receipt Date: 20050913
  Transmission Date: 20060218
  Serious: Yes (Other)
  Sender: FDA-Public Use
  Company Number: HQWYE487415SEP05

PATIENT
  Age: 70 Year
  Sex: Female
  Weight: 47.22 kg

DRUGS (2)
  1. PRIMATENE MIST [Suspect]
     Indication: ASTHMA
     Dosage: 1 INHALATION AS NEEDED, INHALATION/YEARS AGO
     Route: 055
  2. PRIMATENE (EPHEDRINE/GUAIFENESIN) [Concomitant]

REACTIONS (1)
  - HEART RATE INCREASED [None]
